FAERS Safety Report 7022382-7 (Version None)
Quarter: 2010Q3

REPORT INFORMATION
  Report Type: 
  Country: None (occurrence: None)
  Receive Date: 20100930
  Receipt Date: 20100922
  Transmission Date: 20110219
  Serious: No
  Sender: FDA-Public Use
  Company Number: US-PFIZER INC-2010121569

PATIENT
  Sex: Female
  Weight: 70.306 kg

DRUGS (5)
  1. ZOLOFT [Suspect]
     Indication: ANXIETY
     Dosage: 50 MG, 1X/DAY
     Dates: start: 20100916
  2. ZOLOFT [Suspect]
     Indication: DEPRESSION
  3. ZOLOFT [Suspect]
     Indication: OBSESSIVE-COMPULSIVE DISORDER
  4. MONTELUKAST SODIUM [Concomitant]
     Dosage: UNK
  5. STROVITE [Concomitant]
     Dosage: UNK

REACTIONS (2)
  - ANXIETY [None]
  - FATIGUE [None]
